FAERS Safety Report 22825191 (Version 4)
Quarter: 2023Q4

REPORT INFORMATION
  Report Type: Spontaneous
  Country: US (occurrence: US)
  Receive Date: 20230816
  Receipt Date: 20231225
  Transmission Date: 20240109
  Serious: Yes (Hospitalization, Other)
  Sender: FDA-Public Use
  Company Number: US-BRISTOL-MYERS SQUIBB COMPANY-2023-114148

PATIENT
  Age: 71 Year
  Sex: Female

DRUGS (3)
  1. CAMZYOS [Suspect]
     Active Substance: MAVACAMTEN
     Indication: Hypertrophic cardiomyopathy
     Route: 048
  2. CAMZYOS [Suspect]
     Active Substance: MAVACAMTEN
     Route: 048
  3. ROSUVASTATIN [Concomitant]
     Active Substance: ROSUVASTATIN
     Indication: Product used for unknown indication

REACTIONS (6)
  - Sinusitis bacterial [Not Recovered/Not Resolved]
  - Staphylococcal infection [Not Recovered/Not Resolved]
  - Heart rate increased [Unknown]
  - Morton^s neuralgia [Unknown]
  - Upper respiratory tract infection [Unknown]
  - Hepatic enzyme increased [Unknown]

NARRATIVE: CASE EVENT DATE: 20230807
